FAERS Safety Report 17744898 (Version 3)
Quarter: 2021Q3

REPORT INFORMATION
  Report Type: Spontaneous
  Country: GB (occurrence: GB)
  Receive Date: 20200505
  Receipt Date: 20210902
  Transmission Date: 20211014
  Serious: Yes (Hospitalization, Other)
  Sender: FDA-Public Use
  Company Number: GB-TEVA-2018-GB-945649

PATIENT
  Age: 18 Year
  Sex: Female

DRUGS (5)
  1. CHLORPHENAMINE [Concomitant]
     Active Substance: CHLORPHENIRAMINE MALEATE
     Dosage: AS NEEDED; THROUGHOUT HER ADMISSION, SHE WAS ON CHLORPHENAMINE
     Route: 065
  2. GABAPENTIN. [Suspect]
     Active Substance: GABAPENTIN
     Indication: MUSCULOSKELETAL PAIN
     Route: 065
  3. PREGABALIN. [Suspect]
     Active Substance: PREGABALIN
     Indication: ABDOMINAL PAIN
     Route: 065
  4. CETIRIZINE [Concomitant]
     Active Substance: CETIRIZINE HYDROCHLORIDE
     Dosage: 10 MILLIGRAM DAILY; THROUGHOUT HER ADMISSION, SHE WAS ON CETIRIZINE
     Route: 065
  5. GABAPENTIN. [Suspect]
     Active Substance: GABAPENTIN
     Indication: HYPERAESTHESIA

REACTIONS (2)
  - Abscess intestinal [Unknown]
  - Eosinophilic colitis [Recovered/Resolved]
